FAERS Safety Report 13473129 (Version 2)
Quarter: 2021Q2

REPORT INFORMATION
  Report Type: Spontaneous
  Country: US (occurrence: US)
  Receive Date: 20170424
  Receipt Date: 20210531
  Transmission Date: 20210716
  Serious: Yes (Death, Other)
  Sender: FDA-Public Use
  Company Number: US-PFIZER INC-2017171596

PATIENT
  Age: 43 Year
  Sex: Female

DRUGS (7)
  1. LIDOCAINE HCL [Suspect]
     Active Substance: LIDOCAINE HYDROCHLORIDE
     Indication: BACK PAIN
     Dosage: BOTOX: 100 UNITS DILUTED IN 5 CC LIDOCAINE, FOR A DILUTION OF 20 U/CC
  2. BOTOX [Suspect]
     Active Substance: ONABOTULINUMTOXINA
     Indication: BACK PAIN
     Dosage: 100 UNITS DILUTED IN 5 CC LIDOCAINE, DILUTION OF 20 U/CC
  3. LIDOCAINE HCL [Suspect]
     Active Substance: LIDOCAINE HYDROCHLORIDE
     Indication: NECK PAIN
  4. ROBAXIN [Concomitant]
     Active Substance: METHOCARBAMOL
     Dosage: 750 MG, 2X/DAY
  5. BOTOX [Suspect]
     Active Substance: ONABOTULINUMTOXINA
     Indication: NECK PAIN
  6. OXYCODONE [Concomitant]
     Active Substance: OXYCODONE
     Dosage: 5 MG, ONE TO TWO TIMES A DAY
  7. METHADONE [Concomitant]
     Active Substance: METHADONE HYDROCHLORIDE
     Dosage: 10 MG, TWO TO THREE TIMES A DAY

REACTIONS (2)
  - Anaphylactic reaction [Fatal]
  - Ventricular fibrillation [Fatal]
